FAERS Safety Report 7806547-X (Version None)
Quarter: 2011Q4

REPORT INFORMATION
  Report Type: 
  Country: None (occurrence: None)
  Receive Date: 20111011
  Receipt Date: 20110926
  Transmission Date: 20120403
  Serious: Yes (Hospitalization)
  Sender: FDA-Public Use
  Company Number: JP-TYCO HEALTHCARE/MALLINCKRODT-T201101396

PATIENT
  Age: 69 Year
  Sex: Female

DRUGS (6)
  1. LIDOCAINE [Concomitant]
     Indication: LOCAL ANAESTHESIA
     Dosage: 10 ML, QD
     Route: 042
     Dates: start: 20110712, end: 20110712
  2. ALPROSTADIL [Concomitant]
     Indication: VASODILATION PROCEDURE
     Dosage: 1 A, QD
     Route: 013
     Dates: start: 20110712, end: 20110712
  3. GRANISETRON HYDROCHLORIDE [Concomitant]
     Indication: GASTROENTERITIS RADIATION
     Dosage: ONE SYRINGE, QD
     Route: 042
     Dates: start: 20110712, end: 20110712
  4. OPTIRAY 160 [Suspect]
     Indication: ANGIOGRAM
     Dosage: 42 ML, SINGLE
     Route: 013
     Dates: start: 20110712, end: 20110712
  5. HYDROCORTISONE SODIUM SUCCINATE [Concomitant]
     Indication: PREMEDICATION
     Dosage: 300 MG, QD
     Route: 042
     Dates: start: 20110712, end: 20110712
  6. HEPARIN SODIUM [Concomitant]
     Indication: THROMBOSIS PROPHYLAXIS
     Dosage: 10 ML, QD
     Route: 042
     Dates: start: 20110712, end: 20110712

REACTIONS (1)
  - ANAPHYLACTIC SHOCK [None]
